FAERS Safety Report 9633490 (Version 2)
Quarter: 2013Q4

REPORT INFORMATION
  Report Type: Spontaneous
  Country: HK (occurrence: HK)
  Receive Date: 20131021
  Receipt Date: 20131021
  Transmission Date: 20140711
  Serious: Yes (Death)
  Sender: FDA-Public Use
  Company Number: HK-AMGEN-HKGSP2013070114

PATIENT
  Age: 70 Year
  Sex: Male

DRUGS (2)
  1. NEULASTIM [Suspect]
     Indication: PRODUCT USED FOR UNKNOWN INDICATION
     Dosage: UNK
     Route: 065
  2. NEULASTIM [Suspect]
     Dosage: UNK
     Route: 065

REACTIONS (1)
  - Febrile neutropenia [Fatal]
